FAERS Safety Report 14001321 (Version 1)
Quarter: 2017Q3

REPORT INFORMATION
  Report Type: Report from Study
  Country: BE (occurrence: BE)
  Receive Date: 20170922
  Receipt Date: 20170922
  Transmission Date: 20171128
  Serious: Yes (Hospitalization)
  Sender: FDA-Public Use
  Company Number: BE-ASTRAZENECA-2015SE55726

PATIENT
  Age: 58 Year
  Sex: Male

DRUGS (11)
  1. PANTOPRAZOLE [Concomitant]
     Active Substance: PANTOPRAZOLE
     Indication: PROPHYLAXIS
     Route: 048
     Dates: start: 20140722
  2. FELDENE [Concomitant]
     Active Substance: PIROXICAM
     Indication: CHEST PAIN
     Route: 048
     Dates: start: 20150607
  3. MEDI4736 [Suspect]
     Active Substance: DURVALUMAB
     Indication: SQUAMOUS CELL CARCINOMA OF HEAD AND NECK
     Route: 042
     Dates: start: 20150527, end: 20160302
  4. EFEXOR EXCEL [Concomitant]
     Indication: DEPRESSION
     Route: 048
     Dates: start: 20150218
  5. STEOVIT D3 [Concomitant]
     Active Substance: CALCIUM CARBONATE\CHOLECALCIFEROL
     Indication: NUTRITIONAL SUPPLEMENTATION
     Route: 048
     Dates: start: 20140722
  6. LIDOCAINE. [Concomitant]
     Active Substance: LIDOCAINE
     Indication: TUMOUR PAIN
     Dosage: DAILY
     Route: 003
     Dates: start: 20150522
  7. ZOLPIDEM [Concomitant]
     Active Substance: ZOLPIDEM\ZOLPIDEM TARTRATE
     Indication: INSOMNIA
     Dosage: 10.0MG AS REQUIRED
     Route: 048
     Dates: start: 20150522
  8. ALPRAZOLAM. [Concomitant]
     Active Substance: ALPRAZOLAM
     Indication: INSOMNIA
     Dosage: 1.0MG AS REQUIRED
     Route: 048
     Dates: start: 20150522
  9. DAFALGAN [Concomitant]
     Active Substance: ACETAMINOPHEN
     Indication: TUMOUR PAIN
     Dosage: 1.0G AS REQUIRED
     Route: 048
     Dates: start: 20150522
  10. MS DIRECT [Concomitant]
     Active Substance: MORPHINE SULFATE
     Indication: CHEST PAIN
     Dosage: 10.0MG AS REQUIRED
     Route: 048
     Dates: start: 20150701
  11. MOVICOL [Concomitant]
     Active Substance: POLYETHYLENE GLYCOL 3350\POTASSIUM CHLORIDE\SODIUM BICARBONATE\SODIUM CHLORIDE
     Indication: CONSTIPATION PROPHYLAXIS
     Dosage: 13.79G AS REQUIRED
     Route: 048
     Dates: start: 20150218

REACTIONS (3)
  - Blood bilirubin increased [Recovered/Resolved]
  - Erythema multiforme [Recovered/Resolved]
  - Chest pain [Recovered/Resolved]

NARRATIVE: CASE EVENT DATE: 20150531
